FAERS Safety Report 7295210-2 (Version None)
Quarter: 2011Q1

REPORT INFORMATION
  Report Type: 
  Country: None (occurrence: None)
  Receive Date: 20110216
  Receipt Date: 20101207
  Transmission Date: 20110831
  Serious: No
  Sender: FDA-Public Use
  Company Number: A0899344A

PATIENT
  Sex: Female

DRUGS (3)
  1. CIPRO [Suspect]
  2. VOTRIENT [Suspect]
     Dosage: 400MGD PER DAY
     Route: 048
     Dates: start: 20101105, end: 20101128
  3. BACTRIM [Suspect]

REACTIONS (7)
  - DRUG INEFFECTIVE [None]
  - WHITE BLOOD CELL COUNT INCREASED [None]
  - MOUTH ULCERATION [None]
  - URINARY TRACT INFECTION [None]
  - ABDOMINAL DISCOMFORT [None]
  - HAIR COLOUR CHANGES [None]
  - TONGUE ULCERATION [None]
